FAERS Safety Report 25133965 (Version 1)
Quarter: 2025Q1

REPORT INFORMATION
  Report Type: Other
  Country: BE (occurrence: BE)
  Receive Date: 20250328
  Receipt Date: 20250328
  Transmission Date: 20250409
  Serious: Yes (Other)
  Sender: ASPEN
  Company Number: BE-JNJFOC-20250346317

PATIENT

DRUGS (2)
  1. DEXAMETHASONE [Suspect]
     Active Substance: DEXAMETHASONE
     Indication: Product used for unknown indication
     Route: 065
  2. VELCADE [Suspect]
     Active Substance: BORTEZOMIB
     Indication: Plasma cell myeloma
     Route: 065

REACTIONS (2)
  - Plasma cell myeloma [Unknown]
  - Arthralgia [Unknown]

NARRATIVE: CASE EVENT DATE: 20170301
